FAERS Safety Report 21540627 (Version 1)
Quarter: 2022Q4

REPORT INFORMATION
  Report Type: Spontaneous
  Country: US (occurrence: US)
  Receive Date: 20221102
  Receipt Date: 20221102
  Transmission Date: 20230113
  Serious: Yes (Other)
  Sender: FDA-Public Use
  Company Number: US-SUN PHARMACEUTICAL INDUSTRIES LTD-2022R1-361560

PATIENT
  Age: 29 Year
  Sex: Male
  Weight: 115.65 kg

DRUGS (2)
  1. ANASTROZOLE [Suspect]
     Active Substance: ANASTROZOLE
     Indication: Lyme disease
     Dosage: 1 MILLIGRAM ONE TIME PER WEEK
     Route: 065
  2. CLOMIPHENE [Suspect]
     Active Substance: CLOMIPHENE
     Indication: Lyme disease
     Dosage: 50 MILLIGRAM, ONE HALF TABLET THREE TIMES PER WEEK
     Route: 065

REACTIONS (1)
  - Therapy partial responder [Unknown]
